FAERS Safety Report 5499479-6 (Version None)
Quarter: 2007Q4

REPORT INFORMATION
  Report Type: 
  Country: None (occurrence: None)
  Receive Date: 20071026
  Receipt Date: 20071018
  Transmission Date: 20080405
  Serious: Yes (Life-Threatening)
  Sender: FDA-Public Use
  Company Number: US-ROCHE-526127

PATIENT
  Age: 45 Year
  Sex: Female

DRUGS (2)
  1. CELLCEPT [Suspect]
     Indication: POLYMYOSITIS
     Dosage: ON THERAPY FOR SEVERAL YEARS.
     Route: 065
  2. STEROID NOS [Concomitant]
     Dosage: RECENTLY TAPERED OFF STEROIDS

REACTIONS (2)
  - ISCHAEMIC CARDIOMYOPATHY [None]
  - VENTRICULAR FIBRILLATION [None]
